FAERS Safety Report 5896136-9 (Version None)
Quarter: 2008Q3

REPORT INFORMATION
  Report Type: 
  Country: None (occurrence: None)
  Receive Date: 20080924
  Receipt Date: 20080211
  Transmission Date: 20090109
  Serious: Yes (Other)
  Sender: FDA-Public Use
  Company Number: US-ASTRAZENECA-2006UW27802

PATIENT
  Age: 434 Month
  Sex: Male
  Weight: 68 kg

DRUGS (5)
  1. SEROQUEL [Suspect]
     Indication: BIPOLAR DISORDER
     Route: 048
     Dates: start: 20030407, end: 20050818
  2. SEROQUEL [Suspect]
     Indication: DEPRESSION
     Route: 048
     Dates: start: 20030407, end: 20050818
  3. GEODON [Concomitant]
     Dates: start: 20060101
  4. ZYPREXA [Concomitant]
     Dates: start: 20020607, end: 20021011
  5. ABILIFY [Concomitant]

REACTIONS (4)
  - CONVULSION [None]
  - HYPERGLYCAEMIA [None]
  - HYPOAESTHESIA [None]
  - PANCREATITIS [None]
